FAERS Safety Report 8911094 (Version 1)
Quarter: 2012Q4

REPORT INFORMATION
  Report Type: Report from Study
  Country: CA (occurrence: CA)
  Receive Date: 20121116
  Receipt Date: 20121116
  Transmission Date: 20130627
  Serious: Yes (Life-Threatening, Hospitalization)
  Sender: FDA-Public Use
  Company Number: CA-ASTELLAS-2012EU009794

PATIENT
  Age: 61 Year
  Sex: Male

DRUGS (3)
  1. TACROLIMUS [Suspect]
     Indication: LIVER TRANSPLANT
     Dosage: 12 mg, UID/QD
     Route: 048
     Dates: start: 20120424, end: 20121101
  2. TACROLIMUS SYSTEMIC [Suspect]
     Indication: LIVER TRANSPLANT
     Dosage: 6 mg, bid
     Route: 050
     Dates: start: 20121101
  3. CELLCEPT                           /01275102/ [Concomitant]
     Indication: LIVER TRANSPLANT
     Dosage: 500 mg, bid
     Route: 050
     Dates: start: 20121101

REACTIONS (2)
  - Pulseless electrical activity [Recovered/Resolved]
  - Sepsis [Not Recovered/Not Resolved]
